FAERS Safety Report 18429730 (Version 2)
Quarter: 2021Q2

REPORT INFORMATION
  Report Type: Spontaneous
  Country: US (occurrence: US)
  Receive Date: 20201026
  Receipt Date: 20210429
  Transmission Date: 20210717
  Serious: No
  Sender: FDA-Public Use
  Company Number: US-SA-2020SA298968

PATIENT
  Age: 7 Year
  Sex: Male

DRUGS (6)
  1. GENTEAL TEARS [HYPROMELLOSE] [Concomitant]
     Route: 047
  2. HALOBETASOL [Concomitant]
     Active Substance: HALOBETASOL PROPIONATE
  3. DUPIXENT [Suspect]
     Active Substance: DUPILUMAB
     Indication: DERMATITIS ATOPIC
     Dosage: 300 MG, QOW
     Route: 058
     Dates: start: 20201002
  4. TRIAMCINOLONE [Concomitant]
     Active Substance: TRIAMCINOLONE
  5. MUPIROCIN. [Concomitant]
     Active Substance: MUPIROCIN
  6. MOMETASONE [Concomitant]
     Active Substance: MOMETASONE

REACTIONS (5)
  - Rash [Recovered/Resolved]
  - Pruritus [Unknown]
  - Product use issue [Unknown]
  - Eczema [Unknown]
  - Erythema [Unknown]

NARRATIVE: CASE EVENT DATE: 202010
